FAERS Safety Report 18467225 (Version 1)
Quarter: 2020Q4

REPORT INFORMATION
  Report Type: Spontaneous
  Country: US (occurrence: US)
  Receive Date: 20201104
  Receipt Date: 20201104
  Transmission Date: 20210114
  Serious: Yes (Hospitalization)
  Sender: FDA-Public Use
  Company Number: None

PATIENT
  Age: 74 Year
  Sex: Male
  Weight: 58 kg

DRUGS (3)
  1. DOCETAXEL (DOCETAXEL 80MG.VIL INJ) [Suspect]
     Active Substance: DOCETAXEL
     Indication: PROSTATE CANCER METASTATIC
     Route: 042
     Dates: start: 20200211, end: 20200218
  2. ONDANSETRON (ONDANSETRON HCL 4MG/INJ, SOLN) [Suspect]
     Active Substance: ONDANSETRON
     Indication: NAUSEA
     Route: 042
     Dates: start: 20200211, end: 20200218
  3. ONDANSETRON (ONDANSETRON HCL 4MG/INJ, SOLN) [Suspect]
     Active Substance: ONDANSETRON
     Indication: VOMITING
     Route: 042
     Dates: start: 20200211, end: 20200218

REACTIONS (3)
  - Incontinence [None]
  - Generalised tonic-clonic seizure [None]
  - Postictal state [None]

NARRATIVE: CASE EVENT DATE: 20200218
